FAERS Safety Report 7627138-X (Version None)
Quarter: 2011Q3

REPORT INFORMATION
  Report Type: 
  Country: None (occurrence: None)
  Receive Date: 20110714
  Receipt Date: 20110704
  Transmission Date: 20111222
  Serious: Yes (Hospitalization)
  Sender: FDA-Public Use
  Company Number: GER/UKI/11/0018232

PATIENT
  Age: 60 Year
  Sex: Female
  Weight: 60 kg

DRUGS (6)
  1. CITALOPRAM HYDROBROMIDE [Concomitant]
  2. LEVOFLOXACIN [Suspect]
     Indication: PNEUMONIA
     Dosage: 500 MG, 1 IN 1 D, ORAL
     Route: 048
     Dates: start: 20110218, end: 20110224
  3. FEXOFENADINE HCL [Concomitant]
  4. LEVOTHYROXINE SODIUM [Concomitant]
  5. PERINDOPRIL (PERINDOPRIL) [Concomitant]
  6. QUININE SULPHATE (QUININE SULFATE) [Concomitant]

REACTIONS (2)
  - TENDON DISORDER [None]
  - TENDONITIS [None]
